FAERS Safety Report 15825719 (Version 2)
Quarter: 2019Q1

REPORT INFORMATION
  Report Type: Spontaneous
  Country: US (occurrence: US)
  Receive Date: 20190115
  Receipt Date: 20190123
  Transmission Date: 20190417
  Serious: Yes (Other)
  Sender: FDA-Public Use
  Company Number: US-PFIZER INC-2019018311

PATIENT
  Age: 51 Year
  Sex: Female

DRUGS (2)
  1. LYRICA [Suspect]
     Active Substance: PREGABALIN
     Dosage: 300 MG, 3X/DAY
  2. LYRICA [Suspect]
     Active Substance: PREGABALIN
     Dosage: 300 MG, 3X/DAY (4 PILLS OF 75 MG THRICE A DAY)

REACTIONS (5)
  - Prescribed overdose [Unknown]
  - Memory impairment [Unknown]
  - Pain [Unknown]
  - Cerebrovascular accident [Unknown]
  - Insomnia [Unknown]
